FAERS Safety Report 7381643-2 (Version None)
Quarter: 2011Q1

REPORT INFORMATION
  Report Type: 
  Country: None (occurrence: None)
  Receive Date: 20110329
  Receipt Date: 20101007
  Transmission Date: 20110831
  Serious: Yes (Hospitalization)
  Sender: FDA-Public Use
  Company Number: US-BAYER-201022769NA

PATIENT
  Sex: Female
  Weight: 66.818 kg

DRUGS (20)
  1. VISTARIL INTRAMUSCULAR SOLUTION [Concomitant]
  2. NABUMETONE [Concomitant]
     Indication: HEADACHE
     Dates: start: 20050101, end: 20091001
  3. IBUPROFEN [Concomitant]
     Indication: MENSTRUAL DISORDER
  4. CEFADROXIL [Concomitant]
     Dosage: UNK
     Dates: start: 20090801
  5. PHENERGAN [Concomitant]
  6. RELAFEN [Concomitant]
     Dosage: UNK
     Dates: start: 20090902
  7. YAZ [Suspect]
     Indication: DYSMENORRHOEA
  8. RELPAX [Concomitant]
  9. OXYCODONE [Concomitant]
     Dosage: UNK
     Dates: start: 20091130
  10. ALBUTEROL [Concomitant]
     Dosage: UNK
     Dates: start: 20030101, end: 20070101
  11. TYLENOL REGULAR [Concomitant]
     Dosage: UNK
     Dates: start: 20090831
  12. MAXALT [Concomitant]
  13. YAZ [Suspect]
     Indication: MENSTRUAL CYCLE MANAGEMENT
  14. COMPAZINE [Concomitant]
  15. PERIACTIN [Concomitant]
  16. IMITREX [Concomitant]
     Dosage: UNK
     Dates: start: 20090826
  17. DEMEROL [Concomitant]
  18. YAZ [Suspect]
     Indication: ACNE
     Dosage: UNK
     Dates: start: 20090217, end: 20091028
  19. PROMETHAZINE [Concomitant]
     Dosage: UNK
     Dates: start: 20090801
  20. ZOFRAN [Concomitant]
     Dosage: UNK
     Dates: start: 20091130

REACTIONS (4)
  - INTRACRANIAL VENOUS SINUS THROMBOSIS [None]
  - GENERAL PHYSICAL HEALTH DETERIORATION [None]
  - BENIGN INTRACRANIAL HYPERTENSION [None]
  - MIGRAINE [None]
